FAERS Safety Report 10991226 (Version 7)
Quarter: 2015Q4

REPORT INFORMATION
  Report Type: Spontaneous
  Country: US (occurrence: US)
  Receive Date: 20150406
  Receipt Date: 20151123
  Transmission Date: 20160304
  Serious: Yes (Hospitalization, Other)
  Sender: FDA-Public Use
  Company Number: US-BAYER-2015-073200

PATIENT
  Age: 25 Year
  Sex: Female
  Weight: 70.3 kg

DRUGS (3)
  1. MIRENA [Suspect]
     Active Substance: LEVONORGESTREL
     Indication: CONTRACEPTION
     Dosage: 20 MCG/24HR, CONT
     Route: 015
     Dates: start: 20120123, end: 20121016
  2. ORTHO TRI CYCLEN [Concomitant]
     Active Substance: ETHINYL ESTRADIOL\NORGESTIMATE
  3. VALIUM [Concomitant]
     Active Substance: DIAZEPAM
     Dosage: 5 MG, UNK

REACTIONS (18)
  - High risk pregnancy [None]
  - Headache [None]
  - Depression [None]
  - Infertility female [None]
  - Injury [None]
  - Anxiety [None]
  - Uterine perforation [None]
  - Device difficult to use [None]
  - Premature delivery [None]
  - Emotional distress [None]
  - Device issue [None]
  - Dyspareunia [None]
  - Pain [None]
  - Device breakage [None]
  - Post procedural haemorrhage [Not Recovered/Not Resolved]
  - Feeling guilty [None]
  - Maternal exposure before pregnancy [None]
  - Muscle spasms [None]

NARRATIVE: CASE EVENT DATE: 2012
